FAERS Safety Report 5091676-7 (Version None)
Quarter: 2006Q3

REPORT INFORMATION
  Report Type: 
  Country: None (occurrence: None)
  Receive Date: 20060829
  Receipt Date: 20060821
  Transmission Date: 20061208
  Serious: Yes (Hospitalization)
  Sender: FDA-Public Use
  Company Number: FR-AVENTIS-200612894FR

PATIENT
  Age: 48 Year
  Sex: Female

DRUGS (5)
  1. RIFATER [Suspect]
     Indication: DERMO-HYPODERMITIS
     Route: 048
     Dates: start: 20060214, end: 20060319
  2. NOROXIN [Concomitant]
     Indication: URINARY TRACT INFECTION
     Route: 048
     Dates: start: 20060317, end: 20060319
  3. DEBRIDAT [Concomitant]
     Indication: IRRITABLE BOWEL SYNDROME
  4. MOTILIUM [Concomitant]
     Indication: IRRITABLE BOWEL SYNDROME
     Route: 048
  5. SPASFON [Concomitant]
     Indication: IRRITABLE BOWEL SYNDROME

REACTIONS (11)
  - CYTOLYTIC HEPATITIS [None]
  - DERMATITIS EXFOLIATIVE [None]
  - DRUG RASH WITH EOSINOPHILIA AND SYSTEMIC SYMPTOMS [None]
  - EOSINOPHILIA [None]
  - HYPERSENSITIVITY [None]
  - LYMPHADENOPATHY [None]
  - PYREXIA [None]
  - SYSTEMIC INFLAMMATORY RESPONSE SYNDROME [None]
  - TRANSAMINASES INCREASED [None]
  - URINARY TRACT INFECTION [None]
  - VASCULITIS [None]
